FAERS Safety Report 20954021 (Version 1)
Quarter: 2022Q2

REPORT INFORMATION
  Report Type: Spontaneous
  Country: CH (occurrence: CH)
  Receive Date: 20220614
  Receipt Date: 20220614
  Transmission Date: 20220720
  Serious: Yes (Hospitalization)
  Sender: FDA-Public Use
  Company Number: None

PATIENT
  Age: 44 Year
  Sex: Female
  Weight: 110 kg

DRUGS (10)
  1. SAXENDA [Suspect]
     Active Substance: LIRAGLUTIDE
     Indication: Product used for unknown indication
     Dosage: 0.6 MG
     Route: 058
  2. SAXENDA [Suspect]
     Active Substance: LIRAGLUTIDE
     Dosage: 1.2 MG
     Route: 058
     Dates: end: 20220517
  3. COSENTYX [Concomitant]
     Active Substance: SECUKINUMAB
     Indication: Product used for unknown indication
     Dosage: UNK
     Route: 065
  4. METHOTREXATE [Concomitant]
     Active Substance: METHOTREXATE
     Indication: Product used for unknown indication
     Dosage: UNK
     Route: 065
  5. HYDROCORTISONE [Concomitant]
     Active Substance: HYDROCORTISONE
     Indication: Product used for unknown indication
     Dosage: UNK
     Route: 065
  6. Amlodipin sandoz [Concomitant]
     Indication: Product used for unknown indication
     Dosage: UNK
     Route: 065
  7. EUTHYROX [Concomitant]
     Active Substance: LEVOTHYROXINE SODIUM
     Indication: Product used for unknown indication
     Dosage: UNK
     Route: 065
  8. CRESTOR [Concomitant]
     Active Substance: ROSUVASTATIN CALCIUM
     Indication: Product used for unknown indication
     Dosage: UNK
     Route: 065
  9. Fludex [Concomitant]
     Indication: Product used for unknown indication
     Dosage: UNK
     Route: 065
  10. OLMESARTAN MEPHA [Concomitant]
     Indication: Product used for unknown indication
     Dosage: UNK
     Route: 065

REACTIONS (3)
  - Muscular weakness [Unknown]
  - Exercise tolerance decreased [Unknown]
  - Fatigue [Unknown]

NARRATIVE: CASE EVENT DATE: 20220501
